FAERS Safety Report 16277892 (Version 2)
Quarter: 2019Q2

REPORT INFORMATION
  Report Type: Spontaneous
  Country: TR (occurrence: TR)
  Receive Date: 20190506
  Receipt Date: 20190506
  Transmission Date: 20190711
  Serious: Yes (Other)
  Sender: FDA-Public Use
  Company Number: PHHY2019TR098989

PATIENT
  Sex: Male
  Weight: 3.35 kg

DRUGS (4)
  1. CICLOSPORIN [Suspect]
     Active Substance: CYCLOSPORINE
     Dosage: MATERNAL DOSE: 5 MG/KG/DAY
     Route: 063
  2. METHYLPREDNISOLONE. [Suspect]
     Active Substance: METHYLPREDNISOLONE
     Indication: FOETAL EXPOSURE DURING PREGNANCY
     Dosage: MATERNAL DOSE:48 MG/DAY
     Route: 064
  3. METHYLPREDNISOLONE. [Suspect]
     Active Substance: METHYLPREDNISOLONE
     Indication: EXPOSURE VIA BREAST MILK
     Dosage: MATERNAL DOSE:48 MG/DAY
     Route: 063
  4. CICLOSPORIN [Suspect]
     Active Substance: CYCLOSPORINE
     Indication: EXPOSURE VIA BREAST MILK
     Dosage: MATERNAL DOSE: 3 MG/KG/DAY
     Route: 063

REACTIONS (3)
  - Premature baby [Unknown]
  - Foetal exposure during pregnancy [Unknown]
  - Exposure via breast milk [Unknown]
